FAERS Safety Report 9834354 (Version 6)
Quarter: 2015Q1

REPORT INFORMATION
  Report Type: Spontaneous
  Country: US (occurrence: US)
  Receive Date: 20140122
  Receipt Date: 20150325
  Transmission Date: 20150721
  Serious: Yes (Disabling)
  Sender: FDA-Public Use
  Company Number: US-009507513-1401USA006313

PATIENT
  Sex: Male

DRUGS (1)
  1. PROPECIA [Suspect]
     Active Substance: FINASTERIDE
     Indication: ALOPECIA
     Dosage: 1 MG, QD
     Route: 048
     Dates: start: 19990416, end: 20030326

REACTIONS (11)
  - Tinea infection [Unknown]
  - Testicular pain [Not Recovered/Not Resolved]
  - Breast tenderness [Unknown]
  - Asthma [Not Recovered/Not Resolved]
  - Dyspepsia [Unknown]
  - Sexual dysfunction [Not Recovered/Not Resolved]
  - Rash [Unknown]
  - Semen volume decreased [Unknown]
  - Oesophageal stenosis [Unknown]
  - Ejaculation disorder [Not Recovered/Not Resolved]
  - Erectile dysfunction [Not Recovered/Not Resolved]

NARRATIVE: CASE EVENT DATE: 2002
